FAERS Safety Report 13456568 (Version 1)
Quarter: 2017Q2

REPORT INFORMATION
  Report Type: Report from Study
  Country: US (occurrence: US)
  Receive Date: 20170419
  Receipt Date: 20170419
  Transmission Date: 20170830
  Serious: Yes (Hospitalization)
  Sender: FDA-Public Use
  Company Number: US-SA-2017SA067691

PATIENT
  Age: 12 Year
  Sex: Male
  Weight: 61.2 kg

DRUGS (11)
  1. ONDANSETRON [Concomitant]
     Active Substance: ONDANSETRON
  2. AMITRIPTYLINE [Concomitant]
     Active Substance: AMITRIPTYLINE
  3. METHADONE [Concomitant]
     Active Substance: METHADONE HYDROCHLORIDE
  4. LEUKINE [Suspect]
     Active Substance: SARGRAMOSTIM
     Indication: OSTEOSARCOMA
     Route: 058
     Dates: start: 20170303, end: 20170310
  5. LORAZEPAM. [Suspect]
     Active Substance: LORAZEPAM
     Indication: NAUSEA
     Route: 065
     Dates: start: 20170309
  6. LORAZEPAM. [Suspect]
     Active Substance: LORAZEPAM
     Indication: ANXIETY
     Route: 065
     Dates: start: 20170309
  7. HYDROCODONE [Suspect]
     Active Substance: HYDROCODONE
     Indication: HEADACHE
     Route: 065
     Dates: start: 20170309
  8. TRAZODONE [Concomitant]
     Active Substance: TRAZODONE HYDROCHLORIDE
  9. DINUTUXIMAB [Suspect]
     Active Substance: DINUTUXIMAB
     Indication: OSTEOSARCOMA
     Route: 041
     Dates: start: 20170307, end: 20170309
  10. IBUPROFEN. [Concomitant]
     Active Substance: IBUPROFEN
  11. GABAPENTIN. [Concomitant]
     Active Substance: GABAPENTIN

REACTIONS (2)
  - Hypoxia [Recovering/Resolving]
  - Depressed level of consciousness [Recovering/Resolving]

NARRATIVE: CASE EVENT DATE: 20170309
